FAERS Safety Report 10583415 (Version 2)
Quarter: 2014Q4

REPORT INFORMATION
  Report Type: Spontaneous
  Country: US (occurrence: None)
  Receive Date: 20141112
  Receipt Date: 20141117
  Transmission Date: 20150529
  Serious: Yes (Other)
  Sender: FDA-Public Use
  Company Number: ADR-2014-02080

PATIENT
  Sex: Female

DRUGS (4)
  1. BACLOFEN INTRATHECAL [Suspect]
     Active Substance: BACLOFEN
     Indication: PAIN
  2. FENTANYL INTRATHECAL [Suspect]
     Active Substance: FENTANYL
     Indication: PAIN
  3. CLONIDINE. [Suspect]
     Active Substance: CLONIDINE
  4. BUPIVACAINE INTRATHECAL [Suspect]
     Active Substance: BUPIVACAINE

REACTIONS (7)
  - Cardiac pacemaker replacement [None]
  - Upper limb fracture [None]
  - Gait disturbance [None]
  - Complex regional pain syndrome [None]
  - Fall [None]
  - Loss of control of legs [None]
  - Treatment noncompliance [None]
